FAERS Safety Report 12571089 (Version 1)
Quarter: 2016Q3

REPORT INFORMATION
  Report Type: Spontaneous
  Country: FR (occurrence: FR)
  Receive Date: 20160719
  Receipt Date: 20160719
  Transmission Date: 20161109
  Serious: Yes (Life-Threatening)
  Sender: FDA-Public Use
  Company Number: FR-SA-2016SA128658

PATIENT
  Age: 58 Year
  Sex: Female

DRUGS (6)
  1. FAMPYRA [Suspect]
     Active Substance: DALFAMPRIDINE
     Indication: MULTIPLE SCLEROSIS
     Dosage: TABLET MORNING AND EVENING
     Route: 048
     Dates: end: 201606
  2. BACLOFENE ZENTIVA [Suspect]
     Active Substance: BACLOFEN
     Indication: MUSCLE TWITCHING
     Route: 048
  3. FAMPYRA [Suspect]
     Active Substance: DALFAMPRIDINE
     Indication: MULTIPLE SCLEROSIS
     Dosage: TABLET MORNING AND EVENING
     Route: 048
  4. BACLOFENE ZENTIVA [Suspect]
     Active Substance: BACLOFEN
     Indication: MUSCLE TWITCHING
     Route: 048
     Dates: end: 201606
  5. AUBAGIO [Suspect]
     Active Substance: TERIFLUNOMIDE
     Indication: MULTIPLE SCLEROSIS
     Route: 048
     Dates: end: 201603
  6. AUBAGIO [Suspect]
     Active Substance: TERIFLUNOMIDE
     Indication: MULTIPLE SCLEROSIS
     Route: 048

REACTIONS (2)
  - Ischaemic stroke [Recovered/Resolved with Sequelae]
  - Arrhythmia supraventricular [Recovered/Resolved]

NARRATIVE: CASE EVENT DATE: 20160602
